FAERS Safety Report 5804110-3 (Version None)
Quarter: 2008Q3

REPORT INFORMATION
  Report Type: 
  Country: None (occurrence: None)
  Receive Date: 20080707
  Receipt Date: 20080707
  Transmission Date: 20090109
  Serious: No
  Sender: FDA-Public Use
  Company Number: None

PATIENT
  Sex: Male
  Weight: 123.0609 kg

DRUGS (4)
  1. LITHOBID [Suspect]
     Indication: BIPOLAR DISORDER
     Dosage: TWO BID PO
     Route: 048
     Dates: start: 20070215, end: 20070713
  2. LITHOBID [Suspect]
     Indication: UNEVALUABLE EVENT
     Dosage: TWO BID PO
     Route: 048
     Dates: start: 20070215, end: 20070713
  3. LITHOBID [Suspect]
     Indication: BIPOLAR DISORDER
     Dosage: TWO BID PO
     Route: 048
     Dates: start: 20080627
  4. LITHOBID [Suspect]
     Indication: UNEVALUABLE EVENT
     Dosage: TWO BID PO
     Route: 048
     Dates: start: 20080627

REACTIONS (2)
  - DRUG INTOLERANCE [None]
  - PHARMACEUTICAL PRODUCT COMPLAINT [None]
